FAERS Safety Report 24056377 (Version 2)
Quarter: 2024Q3

REPORT INFORMATION
  Report Type: Spontaneous
  Country: US (occurrence: US)
  Receive Date: 20240705
  Receipt Date: 20240723
  Transmission Date: 20241017
  Serious: Yes (Hospitalization, Other)
  Sender: SUNOVION
  Company Number: US-SMPA-2024SPA000095

PATIENT

DRUGS (10)
  1. LATUDA [Suspect]
     Active Substance: LURASIDONE HYDROCHLORIDE
     Indication: Mania
     Dosage: 120 MG
     Route: 048
     Dates: end: 2023
  2. LATUDA [Suspect]
     Active Substance: LURASIDONE HYDROCHLORIDE
     Dosage: UNK (GOING DOWN)
     Route: 048
     Dates: start: 2023, end: 202310
  3. LATUDA [Suspect]
     Active Substance: LURASIDONE HYDROCHLORIDE
     Dosage: 40 MG
     Route: 048
     Dates: start: 202310, end: 2023
  4. CAPLYTA [Suspect]
     Active Substance: LUMATEPERONE
     Indication: Bipolar disorder
     Dosage: 42 MG, CAPSULE
     Route: 048
     Dates: start: 202305, end: 202312
  5. CAPLYTA [Suspect]
     Active Substance: LUMATEPERONE
     Dosage: 42 MG, QD
     Route: 048
     Dates: start: 202312
  6. LITHIUM [Suspect]
     Active Substance: LITHIUM
     Indication: Mania
     Dosage: UNK
     Route: 065
     Dates: end: 202311
  7. LITHIUM [Suspect]
     Active Substance: LITHIUM
     Dosage: UNK (INCREASED DOSE)
     Route: 065
     Dates: start: 202311
  8. ATIVAN [Suspect]
     Active Substance: LORAZEPAM
     Dosage: 1 MG, BID (HIGH DOSES)
     Route: 065
  9. GABAPENTIN [Suspect]
     Active Substance: GABAPENTIN
     Dosage: UNK (HIGH DOSES)
     Route: 065
  10. XANAX [Suspect]
     Active Substance: ALPRAZOLAM
     Dosage: UNK (HIGH DOSES)
     Route: 065

REACTIONS (10)
  - Toxicity to various agents [Recovered/Resolved]
  - Cerebral disorder [Recovered/Resolved]
  - Atelectasis [Recovered/Resolved]
  - Pneumothorax [Recovered/Resolved]
  - Cardiovascular disorder [Recovered/Resolved]
  - Weight decreased [Not Recovered/Not Resolved]
  - Amnesia [Not Recovered/Not Resolved]
  - Mania [Recovered/Resolved]
  - Sedation [Unknown]
  - Off label use [Unknown]

NARRATIVE: CASE EVENT DATE: 20230101
